FAERS Safety Report 7510374-0 (Version None)
Quarter: 2011Q2

REPORT INFORMATION
  Report Type: 
  Country: None (occurrence: None)
  Receive Date: 20110527
  Receipt Date: 20110516
  Transmission Date: 20111010
  Serious: Yes (Hospitalization)
  Sender: FDA-Public Use
  Company Number: GB-WATSON-2011-06938

PATIENT
  Sex: Female

DRUGS (4)
  1. CYCLOPHOSPHAMIDE [Suspect]
     Indication: BREAST CANCER
     Dosage: 600 MG/M2, UNK
     Route: 042
  2. FLUOROURACIL [Suspect]
     Indication: BREAST CANCER
     Dosage: 600 MG/M2, DAILY, DAYS 1 AND 8, EVERY 4 WEEKS
     Route: 042
  3. METHOTREXATE [Suspect]
     Indication: BREAST CANCER
     Dosage: 40 MG/M2, UNK
     Route: 042
  4. EPIRUBICIN [Suspect]
     Indication: BREAST CANCER
     Dosage: 100 MG/M2, Q 3 WEEKS
     Route: 042

REACTIONS (1)
  - ISCHAEMIC STROKE [None]
